FAERS Safety Report 5488713-4 (Version None)
Quarter: 2007Q4

REPORT INFORMATION
  Report Type: 
  Country: None (occurrence: None)
  Receive Date: 20071017
  Receipt Date: 20071005
  Transmission Date: 20080405
  Serious: Yes (Other)
  Sender: FDA-Public Use
  Company Number: SE-PFIZER INC-2007040653

PATIENT
  Sex: Female
  Weight: 96.7 kg

DRUGS (5)
  1. LYRICA [Suspect]
     Indication: NERVE INJURY
     Route: 048
     Dates: start: 20051201, end: 20070501
  2. LYRICA [Suspect]
     Indication: PAIN
  3. BENDROFLUMETHIAZIDE [Concomitant]
     Route: 048
  4. LOSARTAN POTASSIUM [Concomitant]
  5. BUDESONIDE [Concomitant]

REACTIONS (5)
  - DRUG WITHDRAWAL SYNDROME [None]
  - DRY EYE [None]
  - MEMORY IMPAIRMENT [None]
  - PHOTOPSIA [None]
  - VITREOUS DETACHMENT [None]
